FAERS Safety Report 19288240 (Version 2)
Quarter: 2021Q3

REPORT INFORMATION
  Report Type: Spontaneous
  Country: US (occurrence: US)
  Receive Date: 20210521
  Receipt Date: 20210708
  Transmission Date: 20211014
  Serious: No
  Sender: FDA-Public Use
  Company Number: US-PFIZER INC-2021455186

PATIENT
  Age: 59 Year
  Sex: Female
  Weight: 62.6 kg

DRUGS (2)
  1. PREMARIN [Suspect]
     Active Substance: ESTROGENS, CONJUGATED
     Indication: BLOOD OESTROGEN DECREASED
     Dosage: 1G, DAILY (EVERY DAY FOR TWO WEEKS)
     Route: 067
     Dates: start: 20210420
  2. PREMARIN [Suspect]
     Active Substance: ESTROGENS, CONJUGATED
     Indication: MENOPAUSE
     Dosage: 1 G, 2X/WEEK
     Route: 067

REACTIONS (2)
  - Off label use [Unknown]
  - Device issue [Unknown]
